FAERS Safety Report 4578405-8 (Version None)
Quarter: 2005Q1

REPORT INFORMATION
  Report Type: 
  Country: None (occurrence: None)
  Receive Date: 20050203
  Receipt Date: 20050203
  Transmission Date: 20050727
  Serious: Yes (Death)
  Sender: FDA-Public Use
  Company Number: None

PATIENT
  Age: 40 Year
  Sex: Male
  Weight: 65.318 kg

DRUGS (8)
  1. KALETRA [Suspect]
     Indication: ACQUIRED IMMUNODEFICIENCY SYNDROME
     Dates: start: 20010901
  2. VIDEX [Suspect]
     Indication: ACQUIRED IMMUNODEFICIENCY SYNDROME
     Dates: start: 20010901
  3. ZERIT [Suspect]
     Indication: ACQUIRED IMMUNODEFICIENCY SYNDROME
     Dates: start: 20010901
  4. SUDAFED 12 HOUR [Concomitant]
  5. ALLEGRA [Concomitant]
  6. BACTRIM [Concomitant]
  7. XANAX [Concomitant]
  8. DIPROLENE [Concomitant]

REACTIONS (2)
  - PULMONARY HAEMORRHAGE [None]
  - RESPIRATORY FAILURE [None]
